FAERS Safety Report 6748425-3 (Version None)
Quarter: 2010Q2

REPORT INFORMATION
  Report Type: 
  Country: None (occurrence: None)
  Receive Date: 20100601
  Receipt Date: 20100601
  Transmission Date: 20101027
  Serious: Yes (Life-Threatening, Other)
  Sender: FDA-Public Use
  Company Number: None

PATIENT
  Age: 3 Year
  Sex: Female
  Weight: 13.6079 kg

DRUGS (2)
  1. TYLENOL INFANTS' DROPS 80MG PER 0.8 ML MCNEIL [Suspect]
     Indication: PYREXIA
     Dosage: 1.6ML 8HR BUCCAL
     Route: 002
     Dates: start: 20090927, end: 20091005
  2. MOTRIN [Suspect]
     Indication: PYREXIA
     Dosage: 5ML 8HR BUCCAL
     Route: 002
     Dates: start: 20100105, end: 20100115

REACTIONS (6)
  - ASTHMA [None]
  - CONDITION AGGRAVATED [None]
  - HYPOPHAGIA [None]
  - NO THERAPEUTIC RESPONSE [None]
  - PYREXIA [None]
  - VIRAL INFECTION [None]
